FAERS Safety Report 8356370-5 (Version None)
Quarter: 2012Q2

REPORT INFORMATION
  Report Type: 
  Country: None (occurrence: None)
  Receive Date: 20120514
  Receipt Date: 20110426
  Transmission Date: 20120825
  Serious: No
  Sender: FDA-Public Use
  Company Number: US-TEVA-2011002070

PATIENT
  Sex: Female
  Weight: 73.548 kg

DRUGS (6)
  1. LIPITOR [Concomitant]
     Dates: start: 20010101
  2. NUVIGIL [Suspect]
     Indication: DEPRESSION
     Route: 048
     Dates: start: 20110201
  3. FLUID PILL [Concomitant]
     Dates: start: 20100101
  4. SYNTHROID [Concomitant]
     Dates: start: 19810101
  5. ZETIA [Concomitant]
     Dates: start: 20010101
  6. ATENOLOL [Concomitant]
     Dates: start: 20050101

REACTIONS (4)
  - DYSPEPSIA [None]
  - THERAPEUTIC RESPONSE UNEXPECTED [None]
  - DECREASED APPETITE [None]
  - WEIGHT DECREASED [None]
